FAERS Safety Report 7231279-9 (Version None)
Quarter: 2011Q1

REPORT INFORMATION
  Report Type: 
  Country: None (occurrence: None)
  Receive Date: 20110118
  Receipt Date: 20110113
  Transmission Date: 20110831
  Serious: Yes (Other)
  Sender: FDA-Public Use
  Company Number: GB-ROCHE-753418

PATIENT

DRUGS (2)
  1. VALGANCICLOVIR HCL [Suspect]
     Route: 065
  2. VALGANCICLOVIR HCL [Suspect]
     Dosage: INDICATION REPORTED AS PROPHYLACTIC TREATMENT OF CMV FOLLOWING HEART AND LUNG TRANSPLANT SURGERY
     Route: 065

REACTIONS (2)
  - DIARRHOEA [None]
  - GLOMERULAR FILTRATION RATE ABNORMAL [None]
